FAERS Safety Report 10249838 (Version 2)
Quarter: 2014Q2

REPORT INFORMATION
  Report Type: Spontaneous
  Country: US (occurrence: US)
  Receive Date: 20140620
  Receipt Date: 20140625
  Transmission Date: 20141212
  Serious: Yes (Other)
  Sender: FDA-Public Use
  Company Number: US-CELGENEUS-163-10004-14062425

PATIENT
  Age: 55 Year
  Sex: Male

DRUGS (1)
  1. OTEZLA [Suspect]
     Indication: PSORIATIC ARTHROPATHY
     Dosage: TIRATION PACK
     Route: 048
     Dates: start: 20140602, end: 20140613

REACTIONS (5)
  - Muscle spasms [Unknown]
  - Abdominal discomfort [Unknown]
  - Depression [Unknown]
  - Diarrhoea [Not Recovered/Not Resolved]
  - Headache [Unknown]
